FAERS Safety Report 6505829-1 (Version None)
Quarter: 2009Q4

REPORT INFORMATION
  Report Type: 
  Country: None (occurrence: None)
  Receive Date: 20091218
  Receipt Date: 20091215
  Transmission Date: 20100525
  Serious: Yes (Other)
  Sender: FDA-Public Use
  Company Number: CZ-BAYER-200942616GPV

PATIENT
  Age: 31 Year
  Sex: Female

DRUGS (2)
  1. INTERFERON BETA-1B [Suspect]
     Indication: MULTIPLE SCLEROSIS
     Route: 065
     Dates: start: 20020701
  2. IMURAN [Suspect]
     Indication: MULTIPLE SCLEROSIS
     Route: 065

REACTIONS (3)
  - HYPERTONIC BLADDER [None]
  - NO ADVERSE EVENT [None]
  - NORMAL NEWBORN [None]
